FAERS Safety Report 18961288 (Version 1)
Quarter: 2021Q1

REPORT INFORMATION
  Report Type: Spontaneous
  Country: US (occurrence: US)
  Receive Date: 20210303
  Receipt Date: 20210303
  Transmission Date: 20210420
  Serious: Yes (Other)
  Sender: FDA-Public Use
  Company Number: US-SPECGX-T202100376

PATIENT
  Age: 40 Year
  Sex: Male

DRUGS (2)
  1. METHADONE [Suspect]
     Active Substance: METHADONE HYDROCHLORIDE
     Indication: PAIN
     Dosage: 140 MILLIGRAM, Q6H
     Route: 065
  2. MORPHINE [Suspect]
     Active Substance: MORPHINE
     Indication: BREAKTHROUGH PAIN
     Dosage: 120 MILLIGRAM, Q4H, PRN
     Route: 065

REACTIONS (7)
  - Hypokalaemia [Recovering/Resolving]
  - Blood pressure systolic increased [Unknown]
  - Pulmonary hypertension [Unknown]
  - Prescribed overdose [Unknown]
  - Hypocalcaemia [Recovering/Resolving]
  - Torsade de pointes [Unknown]
  - Electrocardiogram QT prolonged [Unknown]
